FAERS Safety Report 13868176 (Version 1)
Quarter: 2017Q3

REPORT INFORMATION
  Report Type: Spontaneous
  Country: US (occurrence: US)
  Receive Date: 20170814
  Receipt Date: 20170814
  Transmission Date: 20171127
  Serious: Yes (Other)
  Sender: FDA-Public Use
  Company Number: US-ELI_LILLY_AND_COMPANY-US201708003981

PATIENT
  Age: 62 Year
  Sex: Male
  Weight: 82 kg

DRUGS (2)
  1. TRULICITY [Suspect]
     Active Substance: DULAGLUTIDE
     Indication: TYPE 2 DIABETES MELLITUS
     Dosage: 1.5 MG, WEEKLY (1/W)
     Route: 058
     Dates: start: 20160927, end: 20170405
  2. METFORMIN [Concomitant]
     Active Substance: METFORMIN HYDROCHLORIDE
     Indication: PRODUCT USED FOR UNKNOWN INDICATION
     Dosage: 1 DF, BID
     Dates: start: 201403

REACTIONS (5)
  - Eye swelling [Unknown]
  - Lip swelling [Unknown]
  - Swelling face [Unknown]
  - Urticaria [Unknown]
  - Urticaria [Unknown]

NARRATIVE: CASE EVENT DATE: 20170406
